FAERS Safety Report 8483289-1 (Version None)
Quarter: 2012Q3

REPORT INFORMATION
  Report Type: 
  Country: None (occurrence: None)
  Receive Date: 20120702
  Receipt Date: 20120629
  Transmission Date: 20120928
  Serious: Yes (Other)
  Sender: FDA-Public Use
  Company Number: US-BAYER-2012-056065

PATIENT
  Age: 43 Year
  Sex: Male

DRUGS (3)
  1. KOGENATE FS [Suspect]
     Indication: HAEMATOMA
     Dosage: 10 X 100 U
     Route: 042
     Dates: start: 20110601
  2. KOGENATE FS [Suspect]
     Dosage: 5 IU/KG/HR
     Route: 042
     Dates: start: 20111001
  3. KOGENATE FS [Suspect]
     Dosage: 5 X 100 U
     Route: 042
     Dates: start: 20110601

REACTIONS (1)
  - ANTI FACTOR VIII ANTIBODY POSITIVE [None]
